FAERS Safety Report 4938280-6 (Version None)
Quarter: 2006Q1

REPORT INFORMATION
  Report Type: 
  Country: None (occurrence: None)
  Receive Date: 20060309
  Receipt Date: 20051005
  Transmission Date: 20060701
  Serious: Yes (Other)
  Sender: FDA-Public Use
  Company Number: US-MERCK-0510USA03938

PATIENT
  Age: 73 Year
  Sex: Female

DRUGS (11)
  1. VIOXX [Suspect]
     Route: 048
  2. VIOXX [Suspect]
     Route: 048
  3. PROCARDIA XL [Concomitant]
     Route: 065
  4. PRILOSEC [Concomitant]
     Route: 065
  5. VIOXX [Suspect]
     Route: 048
     Dates: start: 20010501, end: 20041010
  6. CENTRUM SILVER [Concomitant]
     Route: 065
  7. CALCIUM (UNSPECIFIED) [Concomitant]
     Route: 065
  8. ASCORBIC ACID [Concomitant]
     Route: 065
  9. VITAMIN E [Concomitant]
     Route: 065
  10. COLACE [Concomitant]
     Route: 065
  11. ACTIFED [Concomitant]
     Route: 065

REACTIONS (10)
  - CEREBRAL ISCHAEMIA [None]
  - CEREBROVASCULAR ACCIDENT [None]
  - CHEST PAIN [None]
  - DEPRESSION [None]
  - DIABETES MELLITUS [None]
  - GASTROOESOPHAGEAL REFLUX DISEASE [None]
  - GLUCOSE TOLERANCE IMPAIRED [None]
  - HYPERTENSION [None]
  - PNEUMONIA [None]
  - SPINAL DISORDER [None]
